FAERS Safety Report 19756891 (Version 1)
Quarter: 2021Q3

REPORT INFORMATION
  Report Type: Spontaneous
  Country: US (occurrence: US)
  Receive Date: 20210827
  Receipt Date: 20210827
  Transmission Date: 20211014
  Serious: No
  Sender: FDA-Public Use
  Company Number: US-ENDO PHARMACEUTICALS INC-2020-005238

PATIENT
  Age: 82 Year
  Sex: Male
  Weight: 56.24 kg

DRUGS (4)
  1. TESTOPEL [Suspect]
     Active Substance: TESTOSTERONE
     Dosage: UNKNOWN, UNKNOWN; 17 PELLETS
     Route: 065
     Dates: start: 20200107
  2. TESTOPEL [Suspect]
     Active Substance: TESTOSTERONE
     Indication: BLOOD TESTOSTERONE DECREASED
     Dosage: UNK UNKNOWN, UNKNOWN
     Route: 065
  3. TESTOPEL [Suspect]
     Active Substance: TESTOSTERONE
     Indication: BLOOD TESTOSTERONE DECREASED
     Dosage: UNK UNKNOWN, UNKNOWN
     Route: 065
  4. TESTOPEL [Suspect]
     Active Substance: TESTOSTERONE
     Dosage: UNKNOWN, UNKNOWN; 17 PELLETS
     Route: 065
     Dates: start: 20200107

REACTIONS (3)
  - Product dose omission issue [Unknown]
  - Weight decreased [Unknown]
  - Prescribed overdose [Unknown]

NARRATIVE: CASE EVENT DATE: 2020
